FAERS Safety Report 23569090 (Version 1)
Quarter: 2024Q1

REPORT INFORMATION
  Report Type: Spontaneous
  Country: KR (occurrence: KR)
  Receive Date: 20240227
  Receipt Date: 20240227
  Transmission Date: 20240410
  Serious: Yes (Hospitalization, Other)
  Sender: FDA-Public Use
  Company Number: KR-SA-2024SA062735

PATIENT
  Age: 62 Year
  Sex: Male
  Weight: 62 kg

DRUGS (8)
  1. AFLIBERCEPT [Suspect]
     Active Substance: AFLIBERCEPT
     Indication: Rectal cancer
     Dosage: 247 MG/KG, Q3W
     Dates: start: 20211018, end: 20211018
  2. AFLIBERCEPT [Suspect]
     Active Substance: AFLIBERCEPT
     Dosage: 247 MG/KG, Q3W
     Dates: start: 20211020, end: 20211020
  3. IRINOTECAN HYDROCHLORIDE [Suspect]
     Active Substance: IRINOTECAN HYDROCHLORIDE
     Indication: Rectal cancer
     Dosage: 203 MG/M2, Q3W
     Dates: start: 20211018, end: 20211018
  4. IRINOTECAN HYDROCHLORIDE [Suspect]
     Active Substance: IRINOTECAN HYDROCHLORIDE
     Dosage: 203 MG/M2, Q3W
     Dates: start: 20211020, end: 20211020
  5. FLUOROURACIL [Suspect]
     Active Substance: FLUOROURACIL
     Indication: Rectal cancer
     Dosage: 541 MG/M2, Q3W
     Dates: start: 20211018, end: 20211018
  6. FLUOROURACIL [Suspect]
     Active Substance: FLUOROURACIL
     Dosage: 541 MG/M2, Q3W
     Dates: start: 20211020, end: 20211020
  7. FLUOROURACIL [Suspect]
     Active Substance: FLUOROURACIL
     Dosage: 3245 MG/M2, Q3W
     Dates: start: 20211018, end: 20211018
  8. FLUOROURACIL [Suspect]
     Active Substance: FLUOROURACIL
     Dosage: 3245 MG/M2, Q3W
     Dates: start: 20211020, end: 20211020

REACTIONS (1)
  - Anal ulcer [Recovered/Resolved]

NARRATIVE: CASE EVENT DATE: 20211018
